FAERS Safety Report 8942093 (Version 1)
Quarter: 2012Q4

REPORT INFORMATION
  Report Type: 
  Country: US (occurrence: US)
  Receive Date: 20121130
  Receipt Date: 20121130
  Transmission Date: 20130627
  Serious: Yes (Other)
  Sender: FDA-Public Use
  Company Number: US-GLAXOSMITHKLINE-A1003407B

PATIENT
  Sex: Male

DRUGS (14)
  1. ZANTAC [Suspect]
     Indication: GASTROOESOPHAGEAL REFLUX DISEASE
     Route: 064
  2. ZOFRAN [Suspect]
     Indication: NAUSEA
     Route: 064
  3. REGLAN [Suspect]
     Indication: NAUSEA
     Route: 064
  4. PROTONIX [Suspect]
     Indication: GASTROOESOPHAGEAL REFLUX DISEASE
     Route: 064
  5. ZITHROMAX [Suspect]
     Indication: NASOPHARYNGITIS
     Route: 064
  6. ROBITUSSIN [Suspect]
     Indication: NASOPHARYNGITIS
     Route: 064
  7. PROCARDIA [Suspect]
     Indication: PREMATURE LABOUR
     Route: 064
  8. ANTIBIOTIC [Suspect]
     Route: 064
  9. BRETHINE [Suspect]
     Indication: PREMATURE LABOUR
     Route: 064
  10. IRON [Suspect]
     Indication: HAEMOGLOBIN DECREASED
     Route: 064
  11. IRON [Suspect]
     Indication: HAEMOGLOBIN DECREASED
     Route: 064
  12. DIFLUCAN [Suspect]
     Indication: CANDIDIASIS
     Route: 063
  13. ROBITUSSIN [Suspect]
     Indication: NASOPHARYNGITIS
     Route: 063
  14. AUGMENTIN [Suspect]
     Indication: URINARY TRACT INFECTION
     Route: 063

REACTIONS (11)
  - Feeding disorder neonatal [Not Recovered/Not Resolved]
  - Temperature regulation disorder [Unknown]
  - Somnolence [Unknown]
  - Yellow skin [Unknown]
  - Poor sucking reflex [Unknown]
  - Weight decreased [Unknown]
  - Gastrooesophageal reflux disease [Unknown]
  - Exposure during breast feeding [Unknown]
  - Foetal exposure during pregnancy [Unknown]
  - Maternal drugs affecting foetus [None]
  - Caesarean section [None]
